FAERS Safety Report 7584450-0 (Version None)
Quarter: 2011Q2

REPORT INFORMATION
  Report Type: 
  Country: None (occurrence: None)
  Receive Date: 20110531
  Receipt Date: 20110207
  Transmission Date: 20111010
  Serious: Yes (Life-Threatening, Hospitalization, Disabling, Other)
  Sender: FDA-Public Use
  Company Number: WAES 1102USA00891

PATIENT
  Age: 50 Year
  Sex: 0
  Weight: 107.5025 kg

DRUGS (6)
  1. PRILOSEC [Concomitant]
  2. JANUMET [Suspect]
     Indication: TYPE 2 DIABETES MELLITUS
     Dosage: 50/1000 MG/BID/PO
     Route: 048
     Dates: start: 20110113, end: 20110204
  3. CRESTOR [Concomitant]
  4. AMARYL [Concomitant]
  5. TOPROL-XL [Concomitant]
  6. VICTOZA [Suspect]

REACTIONS (1)
  - PANCREATITIS ACUTE [None]
